FAERS Safety Report 7750356-7 (Version None)
Quarter: 2011Q3

REPORT INFORMATION
  Report Type: 
  Country: None (occurrence: None)
  Receive Date: 20110914
  Receipt Date: 20110912
  Transmission Date: 20111222
  Serious: No
  Sender: FDA-Public Use
  Company Number: US-PFIZER INC-2011215686

PATIENT
  Sex: Male

DRUGS (2)
  1. CHILDREN'S ADVIL [Suspect]
     Indication: PYREXIA
  2. CHILDREN'S ADVIL [Suspect]
     Indication: PNEUMONIA
     Dosage: UNK
     Route: 048
     Dates: start: 20110911

REACTIONS (4)
  - HYPERSENSITIVITY [None]
  - INSOMNIA [None]
  - RASH MACULAR [None]
  - PRURITUS GENERALISED [None]
